FAERS Safety Report 23226291 (Version 2)
Quarter: 2025Q2

REPORT INFORMATION
  Report Type: Spontaneous
  Country: US (occurrence: US)
  Receive Date: 20231124
  Receipt Date: 20250416
  Transmission Date: 20250716
  Serious: Yes (Death, Hospitalization, Other)
  Sender: NOVARTIS
  Company Number: US-002147023-NVSC2023US249640

PATIENT
  Age: 72 Year
  Sex: Female

DRUGS (1)
  1. TERBINAFINE [Suspect]
     Active Substance: TERBINAFINE
     Indication: Onychomycosis
     Route: 065

REACTIONS (4)
  - Rhabdomyolysis [Fatal]
  - Drug-induced liver injury [Fatal]
  - Hepatic failure [Fatal]
  - Acute kidney injury [Fatal]
